FAERS Safety Report 8140076-1 (Version None)
Quarter: 2012Q1

REPORT INFORMATION
  Report Type: 
  Country: None (occurrence: None)
  Receive Date: 20120215
  Receipt Date: 20120202
  Transmission Date: 20120608
  Serious: Yes (Hospitalization)
  Sender: FDA-Public Use
  Company Number: ES-MYLANLABS-2012S1002756

PATIENT
  Age: 14 Year
  Sex: Male

DRUGS (2)
  1. VORICONAZOLE [Suspect]
     Indication: PNEUMONIA FUNGAL
     Route: 065
     Dates: start: 20100801
  2. BUDESONIDE [Interacting]
     Indication: COLITIS ULCERATIVE
     Dosage: 3 X 3MG MODIFIED-RELEASE IN THE MORNING
     Dates: start: 20100701

REACTIONS (2)
  - CUSHING'S SYNDROME [None]
  - DRUG INTERACTION [None]
